FAERS Safety Report 14618652 (Version 1)
Quarter: 2018Q1

REPORT INFORMATION
  Report Type: Report from Study
  Country: AT (occurrence: AT)
  Receive Date: 20180309
  Receipt Date: 20180309
  Transmission Date: 20180509
  Serious: No
  Sender: FDA-Public Use
  Company Number: AT-JNJFOC-20180306858

PATIENT
  Sex: Male

DRUGS (3)
  1. STELARA [Suspect]
     Active Substance: USTEKINUMAB
     Indication: PSORIASIS
     Route: 058
     Dates: start: 201511, end: 201606
  2. STELARA [Suspect]
     Active Substance: USTEKINUMAB
     Indication: PSORIASIS
     Route: 058
     Dates: end: 201706
  3. STELARA [Suspect]
     Active Substance: USTEKINUMAB
     Indication: PSORIASIS
     Dosage: INTERVAL WAS 8 TO 10 WEEKS
     Route: 058
     Dates: start: 201606

REACTIONS (4)
  - Drug effect incomplete [Unknown]
  - Liver function test increased [Unknown]
  - Psoriasis [Unknown]
  - Off label use [Unknown]

NARRATIVE: CASE EVENT DATE: 201606
